FAERS Safety Report 7380038-5 (Version None)
Quarter: 2011Q1

REPORT INFORMATION
  Report Type: 
  Country: None (occurrence: None)
  Receive Date: 20110318
  Receipt Date: 20110303
  Transmission Date: 20110831
  Serious: Yes (Other)
  Sender: FDA-Public Use
  Company Number: JP-2011-10275

PATIENT
  Age: 85 Year
  Sex: Female

DRUGS (6)
  1. PLETAAL (CILOSTAZOL) TABLET, 100MG MILLIGRAM(S) [Suspect]
     Indication: GANGRENE
     Dosage: 100 MG MILLIGRAM(S), BID, ORAL
     Route: 048
     Dates: start: 20110210, end: 20110214
  2. CEFZON (CEFDINIR) [Concomitant]
  3. DAONIL (GLIBENCLAMIDE) [Concomitant]
  4. LOCAL ANESTHETICS [Concomitant]
  5. ACETAMINOPHEN [Concomitant]
  6. BIOFERMIN R (ANTIBIOTICS-RESISTANT LACTIC ACID BACTERIAE) [Concomitant]

REACTIONS (2)
  - SPEECH DISORDER [None]
  - ALTERED STATE OF CONSCIOUSNESS [None]
